FAERS Safety Report 13612286 (Version 1)
Quarter: 2017Q2

REPORT INFORMATION
  Report Type: Spontaneous
  Country: NO (occurrence: NO)
  Receive Date: 20170605
  Receipt Date: 20170605
  Transmission Date: 20170830
  Serious: Yes (Hospitalization)
  Sender: FDA-Public Use
  Company Number: NO-NAPPMUNDI-GBR-2017-0045669

PATIENT
  Age: 73 Year
  Sex: Female

DRUGS (14)
  1. PARACET                            /00020001/ [Concomitant]
     Active Substance: ACETAMINOPHEN
  2. IMOVANE [Concomitant]
     Active Substance: ZOPICLONE
     Dosage: ONE DOSE IN THE EVENING
  3. AFIPRAN [Concomitant]
     Active Substance: METOCLOPRAMIDE HYDROCHLORIDE
     Dosage: UP TO FOUR TIMES EACH DAY
  4. NEURONTIN [Concomitant]
     Active Substance: GABAPENTIN
  5. METOPROLOL TARTRATE. [Concomitant]
     Active Substance: METOPROLOL TARTRATE
  6. SOBRIL [Concomitant]
     Active Substance: OXAZEPAM
     Dosage: ONE DOSE IF NECCESSARY
  7. TARGINIQ ER [Suspect]
     Active Substance: NALOXONE HYDROCHLORIDE\OXYCODONE HYDROCHLORIDE
     Indication: CANCER PAIN
     Dosage: 40/20 MG, SINGLE
     Route: 048
     Dates: start: 20170506, end: 20170507
  8. ALBYL-E [Concomitant]
     Active Substance: ASPIRIN\MAGNESIUM OXIDE
  9. FENTANYL. [Concomitant]
     Active Substance: FENTANYL
     Dosage: 150 MICROGRAMS PER HOUR PATCH, CHANGED EVERY SECOND DAY.
     Route: 062
  10. NEXIUM [Concomitant]
     Active Substance: ESOMEPRAZOLE MAGNESIUM
  11. OXYNORM [Concomitant]
     Active Substance: OXYCODONE HYDROCHLORIDE
     Dosage: UP TO SIX TIMES EACH DAY
     Route: 065
  12. DEXAMETHASONE. [Concomitant]
     Active Substance: DEXAMETHASONE
  13. LAXOBERAL [Concomitant]
     Active Substance: SODIUM PICOSULFATE
     Dosage: UP TO 10 DROPLETS EACH EVENING
  14. CREON [Concomitant]
     Active Substance: PANCRELIPASE AMYLASE\PANCRELIPASE LIPASE\PANCRELIPASE PROTEASE
     Dosage: 75000 X 3

REACTIONS (3)
  - Screaming [Recovering/Resolving]
  - Myoclonus [Recovering/Resolving]
  - Myalgia [Recovering/Resolving]

NARRATIVE: CASE EVENT DATE: 20170506
